FAERS Safety Report 19580766 (Version 1)
Quarter: 2021Q3

REPORT INFORMATION
  Report Type: Spontaneous
  Country: US (occurrence: US)
  Receive Date: 20210720
  Receipt Date: 20210720
  Transmission Date: 20211014
  Serious: Yes (Hospitalization)
  Sender: FDA-Public Use
  Company Number: US-AMGEN-USASP2021107233

PATIENT
  Age: 36 Year
  Sex: Female

DRUGS (1)
  1. AIMOVIG [Suspect]
     Active Substance: ERENUMAB-AOOE
     Indication: PRODUCT USED FOR UNKNOWN INDICATION
     Dosage: 70 MILLIGRAM
     Route: 065
     Dates: start: 202101

REACTIONS (5)
  - Unevaluable event [Unknown]
  - Accidental exposure to product [Unknown]
  - Product storage error [Unknown]
  - Incorrect disposal of product [Unknown]
  - Product dispensing error [Unknown]

NARRATIVE: CASE EVENT DATE: 2021
